FAERS Safety Report 9159941 (Version 1)
Quarter: 2013Q1

REPORT INFORMATION
  Report Type: Spontaneous
  Country: US (occurrence: US)
  Receive Date: 20130313
  Receipt Date: 20130313
  Transmission Date: 20140127
  Serious: No
  Sender: FDA-Public Use
  Company Number: US-BAYER-2013-021754

PATIENT
  Sex: 0

DRUGS (2)
  1. BETASERON [Suspect]
     Indication: MULTIPLE SCLEROSIS
     Dosage: UNK
     Dates: end: 20121112
  2. CARDIAC THERAPY [Interacting]
     Indication: CARDIAC DISORDER

REACTIONS (2)
  - Cardiac disorder [None]
  - Drug interaction [None]
